FAERS Safety Report 6066008-8 (Version None)
Quarter: 2009Q1

REPORT INFORMATION
  Report Type: 
  Country: None (occurrence: None)
  Receive Date: 20090205
  Receipt Date: 20090127
  Transmission Date: 20090719
  Serious: Yes (Hospitalization)
  Sender: FDA-Public Use
  Company Number: DE-AMGEN-US330872

PATIENT
  Age: 57 Year
  Sex: Female

DRUGS (5)
  1. ENBREL [Suspect]
     Indication: RHEUMATOID ARTHRITIS
     Route: 058
     Dates: start: 20070301, end: 20080301
  2. METHOTREXATE [Concomitant]
     Dates: start: 20031216, end: 20050412
  3. METHOTREXATE [Concomitant]
     Dates: start: 20050412, end: 20060302
  4. METHOTREXATE [Concomitant]
     Dates: start: 20060302, end: 20060928
  5. METHOTREXATE [Concomitant]
     Dates: start: 20060928

REACTIONS (1)
  - SYNCOPE [None]
